FAERS Safety Report 16207252 (Version 2)
Quarter: 2019Q3

REPORT INFORMATION
  Report Type: Spontaneous
  Country: US (occurrence: US)
  Receive Date: 20190417
  Receipt Date: 20190705
  Transmission Date: 20191004
  Serious: Yes (Other)
  Sender: FDA-Public Use
  Company Number: US-PFIZER INC-2019160758

PATIENT
  Age: 39 Year
  Sex: Female

DRUGS (3)
  1. LETROZOLE. [Suspect]
     Active Substance: LETROZOLE
     Indication: BREAST CANCER METASTATIC
     Dosage: 2.5 MG, 1X/DAY
     Dates: start: 2017
  2. ZOLADEX [Suspect]
     Active Substance: GOSERELIN ACETATE
     Indication: BREAST CANCER METASTATIC
     Dosage: 1 DF, CYCLIC (1 SHOT ONCE ANY 3 MONTHS)
     Dates: start: 2017
  3. IBRANCE [Suspect]
     Active Substance: PALBOCICLIB
     Indication: BREAST CANCER METASTATIC
     Dosage: UNK
     Dates: start: 2017

REACTIONS (8)
  - Hot flush [Not Recovered/Not Resolved]
  - Hair disorder [Not Recovered/Not Resolved]
  - Fatigue [Not Recovered/Not Resolved]
  - Weight increased [Not Recovered/Not Resolved]
  - Stomatitis [Unknown]
  - Asthenia [Not Recovered/Not Resolved]
  - Ankle fracture [Unknown]
  - Gastrointestinal disorder [Unknown]

NARRATIVE: CASE EVENT DATE: 2017
